FAERS Safety Report 8761984 (Version 2)
Quarter: 2012Q4

REPORT INFORMATION
  Report Type: 
  Country: JP (occurrence: JP)
  Receive Date: 20120829
  Receipt Date: 20120917
  Transmission Date: 20130627
  Serious: Yes (Other)
  Sender: FDA-Public Use
  Company Number: JP-PFIZER INC-2012177771

PATIENT
  Age: 74 Year
  Sex: Male
  Weight: 47.7 kg

DRUGS (8)
  1. ZYVOX [Suspect]
     Indication: NOCARDIOSIS
     Dosage: 600 mg, 2x/day
     Route: 041
     Dates: start: 20120627, end: 20120705
  2. ZYVOX [Suspect]
     Indication: NOCARDIOSIS
     Dosage: 600 mg, 2x/day
     Route: 048
     Dates: start: 20120706, end: 20120710
  3. LASIX [Suspect]
     Indication: CARDIAC FAILURE
     Dosage: 40 mg, 1x/day
     Route: 048
     Dates: start: 20120629, end: 20120706
  4. TIENAM [Concomitant]
     Indication: NOCARDIOSIS
     Dosage: 0.5 g, 2x/day
     Route: 042
     Dates: start: 20120530, end: 20120618
  5. TIENAM [Concomitant]
     Dosage: 0.25 g, 3x/day
     Route: 042
     Dates: start: 20120619, end: 20120710
  6. BACTRAMIN [Concomitant]
     Indication: NOCARDIOSIS
     Dosage: 4 DF, 2x/day
     Route: 048
     Dates: start: 20120607, end: 20120613
  7. BACTRAMIN [Concomitant]
     Dosage: 2 DF, 3x/day
     Route: 048
     Dates: start: 20120614, end: 20120618
  8. BACTRAMIN [Concomitant]
     Dosage: 2 DF, 2x/day
     Route: 048
     Dates: start: 20120619, end: 20120626

REACTIONS (1)
  - Blood uric acid increased [Recovering/Resolving]
